FAERS Safety Report 21263454 (Version 1)
Quarter: 2022Q3

REPORT INFORMATION
  Report Type: Spontaneous
  Country: US (occurrence: US)
  Receive Date: 20220829
  Receipt Date: 20220829
  Transmission Date: 20221026
  Serious: No
  Sender: FDA-Public Use
  Company Number: US-AMGEN-USASP2022144114

PATIENT
  Sex: Female

DRUGS (1)
  1. MVASI [Suspect]
     Active Substance: BEVACIZUMAB-AWWB
     Indication: Squamous cell carcinoma of skin
     Dosage: 388.5 MILLIGRAM, Q2WK (388.5MG, 1 VIAL OF 400MG MVASI)
     Route: 042
     Dates: start: 20200917

REACTIONS (2)
  - Off label use [Unknown]
  - Diarrhoea [Unknown]
